FAERS Safety Report 7366278-X (Version None)
Quarter: 2011Q1

REPORT INFORMATION
  Report Type: 
  Country: None (occurrence: None)
  Receive Date: 20110307
  Receipt Date: 20110302
  Transmission Date: 20110831
  Serious: No
  Sender: FDA-Public Use
  Company Number: BO703733A

PATIENT
  Age: 47 Year
  Sex: Male

DRUGS (3)
  1. LAMOTRIGINE [Suspect]
     Indication: EPILEPSY
     Dosage: 200 MG
  2. PHENYTOIN [Suspect]
     Indication: EPILEPSY
     Dosage: 200 MG
  3. LEVETIRACETAM [Concomitant]

REACTIONS (5)
  - HEPATIC FAILURE [None]
  - TUBULOINTERSTITIAL NEPHRITIS [None]
  - RENAL FAILURE [None]
  - NEPHRITIS ALLERGIC [None]
  - HAEMODIALYSIS [None]
